FAERS Safety Report 8593454-0 (Version None)
Quarter: 2012Q3

REPORT INFORMATION
  Report Type: 
  Country: None (occurrence: None)
  Receive Date: 20120814
  Receipt Date: 20120727
  Transmission Date: 20120928
  Serious: No
  Sender: FDA-Public Use
  Company Number: US-ASTRAZENECA-2012SE53732

PATIENT
  Age: 67 Year
  Sex: Female

DRUGS (3)
  1. PRILOSEC OTC [Suspect]
     Route: 048
  2. NEXIUM [Suspect]
     Route: 048
  3. TRICOR [Concomitant]

REACTIONS (8)
  - DYSPHONIA [None]
  - INTENTIONAL DRUG MISUSE [None]
  - EROSIVE OESOPHAGITIS [None]
  - DYSPEPSIA [None]
  - BURNING SENSATION [None]
  - DRUG INEFFECTIVE [None]
  - COUGH [None]
  - DRUG DOSE OMISSION [None]
